FAERS Safety Report 8762778 (Version 1)
Quarter: 2012Q4

REPORT INFORMATION
  Report Type: 
  Country: US (occurrence: US)
  Receive Date: 20120829
  Receipt Date: 20120829
  Transmission Date: 20130627
  Serious: No
  Sender: FDA-Public Use
  Company Number: US-PFIZER INC-2012211290

PATIENT
  Age: 53 Year
  Sex: Female
  Weight: 118 kg

DRUGS (3)
  1. CELEBREX [Suspect]
     Indication: PAIN
     Dosage: 200 mg, daily
     Route: 048
  2. CELEBREX [Suspect]
     Dosage: 400 mg, daily
     Route: 048
  3. DIOVAN HCT [Concomitant]
     Indication: HYPERTENSION
     Dosage: 80/12.5 mg, daily

REACTIONS (2)
  - Intentional drug misuse [Unknown]
  - Drug effect incomplete [Unknown]
